FAERS Safety Report 5699180-X (Version None)
Quarter: 2008Q2

REPORT INFORMATION
  Report Type: 
  Country: None (occurrence: None)
  Receive Date: 20080407
  Receipt Date: 20080407
  Transmission Date: 20081010
  Serious: No
  Sender: FDA-Public Use
  Company Number: None

PATIENT
  Sex: Female
  Weight: 78.9259 kg

DRUGS (1)
  1. SINGULAIR [Suspect]
     Indication: ASTHMA
     Dosage: 10MG QD PO
     Route: 048
     Dates: start: 20071111, end: 20080327

REACTIONS (3)
  - LACERATION [None]
  - MOOD ALTERED [None]
  - SUICIDE ATTEMPT [None]
